FAERS Safety Report 8055749-9 (Version None)
Quarter: 2012Q1

REPORT INFORMATION
  Report Type: 
  Country: None (occurrence: None)
  Receive Date: 20120119
  Receipt Date: 20120113
  Transmission Date: 20120608
  Serious: Yes (Other)
  Sender: FDA-Public Use
  Company Number: US-SANOFI-AVENTIS-2012SA002862

PATIENT
  Age: 84 Year
  Sex: Female

DRUGS (2)
  1. PLAVIX [Suspect]
     Indication: CARDIAC OPERATION
     Route: 048
  2. PLAVIX [Suspect]
     Indication: STENT PLACEMENT
     Route: 048

REACTIONS (3)
  - ARTERIAL OCCLUSIVE DISEASE [None]
  - STENT PLACEMENT [None]
  - CONTUSION [None]
